FAERS Safety Report 7357319-4 (Version None)
Quarter: 2011Q1

REPORT INFORMATION
  Report Type: 
  Country: None (occurrence: None)
  Receive Date: 20110307
  Receipt Date: 20110224
  Transmission Date: 20110831
  Serious: Yes (Death)
  Sender: FDA-Public Use
  Company Number: 843193

PATIENT
  Age: 60 Year
  Sex: Female
  Weight: 80.6 kg

DRUGS (6)
  1. PACLITAXEL [Suspect]
     Indication: CERVIX CARCINOMA
     Dosage: 312 MG MILLIGRAM(S), INTRAVENOUS (NOT OTHERWISE SPECIFIED)
     Route: 042
     Dates: start: 20101123, end: 20101221
  2. (DEXAMETHASONE) [Concomitant]
  3. RANITIDINE [Concomitant]
  4. CHLORPHENIRAMINE MALEATE [Concomitant]
  5. ONDANSETRON [Concomitant]
  6. CISPLATIN [Concomitant]

REACTIONS (1)
  - DEATH [None]
